FAERS Safety Report 6139645-X (Version None)
Quarter: 2009Q2

REPORT INFORMATION
  Report Type: 
  Country: None (occurrence: None)
  Receive Date: 20090401
  Receipt Date: 20070727
  Transmission Date: 20091009
  Serious: Yes (Death, Hospitalization)
  Sender: FDA-Public Use
  Company Number: US-ASTRAZENECA-2006UW09029

PATIENT
  Age: 19508 Day
  Sex: Male
  Weight: 92.5 kg

DRUGS (110)
  1. SEROQUEL [Suspect]
     Indication: DEPRESSION
     Route: 048
     Dates: start: 20030911
  2. SEROQUEL [Suspect]
     Indication: SCHIZOPHRENIA
     Route: 048
     Dates: start: 20030911
  3. SEROQUEL [Suspect]
     Route: 048
     Dates: start: 20030911
  4. SEROQUEL [Suspect]
     Route: 048
     Dates: start: 20030924
  5. SEROQUEL [Suspect]
     Route: 048
     Dates: start: 20030924
  6. SEROQUEL [Suspect]
     Route: 048
     Dates: start: 20030924
  7. SEROQUEL [Suspect]
     Route: 048
     Dates: start: 20040102
  8. SEROQUEL [Suspect]
     Route: 048
     Dates: start: 20040102
  9. SEROQUEL [Suspect]
     Route: 048
     Dates: start: 20040102
  10. SEROQUEL [Suspect]
     Route: 048
     Dates: start: 20050606
  11. SEROQUEL [Suspect]
     Route: 048
     Dates: start: 20050606
  12. SEROQUEL [Suspect]
     Route: 048
     Dates: start: 20050606
  13. SEROQUEL [Suspect]
     Route: 048
     Dates: start: 20050616
  14. SEROQUEL [Suspect]
     Route: 048
     Dates: start: 20050616
  15. SEROQUEL [Suspect]
     Route: 048
     Dates: start: 20050616
  16. SEROQUEL [Suspect]
     Route: 048
     Dates: start: 20050621
  17. SEROQUEL [Suspect]
     Route: 048
     Dates: start: 20050621
  18. SEROQUEL [Suspect]
     Route: 048
     Dates: start: 20050621
  19. SEROQUEL [Suspect]
     Route: 048
     Dates: start: 20060622
  20. SEROQUEL [Suspect]
     Route: 048
     Dates: start: 20060622
  21. SEROQUEL [Suspect]
     Route: 048
     Dates: start: 20060622
  22. SEROQUEL [Suspect]
     Dosage: 25, 100, 200, 300 MG
     Route: 048
     Dates: start: 20030917
  23. SEROQUEL [Suspect]
     Dosage: 25, 100, 200, 300 MG
     Route: 048
     Dates: start: 20030917
  24. SEROQUEL [Suspect]
     Dosage: 25, 100, 200, 300 MG
     Route: 048
     Dates: start: 20030917
  25. RISPERDAL [Suspect]
     Indication: SCHIZOPHRENIA
     Dates: start: 19950101
  26. RISPERDAL [Suspect]
     Indication: DEPRESSION
     Dates: start: 19950101
  27. RISPERDAL [Suspect]
     Dates: start: 19980901, end: 20030927
  28. RISPERDAL [Suspect]
     Dates: start: 19980901, end: 20030927
  29. ZYPREXA ZYDIS [Suspect]
     Indication: SCHIZOPHRENIA
     Dates: start: 20040630, end: 20060617
  30. ZYPREXA ZYDIS [Suspect]
     Indication: DEPRESSION
     Dates: start: 20040630, end: 20060617
  31. ZYPREXA ZYDIS [Suspect]
     Dates: start: 20040630, end: 20060617
  32. ZYPREXA ZYDIS [Suspect]
     Dates: start: 20040630, end: 20060617
  33. DEPAKOTE [Concomitant]
     Dates: start: 19980919
  34. DEPAKOTE [Concomitant]
     Dates: start: 19981130
  35. DEPAKOTE [Concomitant]
     Dates: start: 19990120
  36. DEPAKOTE [Concomitant]
     Dates: start: 19990217
  37. DEPAKOTE [Concomitant]
     Dates: start: 19990322
  38. DEPAKOTE [Concomitant]
     Dates: start: 19990322
  39. DEPAKOTE [Concomitant]
     Dates: start: 20000112
  40. DEPAKOTE [Concomitant]
     Dates: start: 20031021
  41. DEPAKOTE [Concomitant]
     Dates: start: 20040102
  42. GEODON [Concomitant]
     Dates: start: 20040428
  43. GEMFIBROZIL [Concomitant]
     Dates: start: 19980919
  44. AMOXICILLIN [Concomitant]
     Dates: start: 20000117
  45. NIZORAL [Concomitant]
     Dates: start: 20000222
  46. DESOWEN [Concomitant]
     Dates: start: 20000222
  47. PREVIDENT [Concomitant]
     Dates: start: 20000226
  48. LIPITOR [Concomitant]
     Dates: start: 20000310
  49. LIPITOR [Concomitant]
     Dates: start: 20020727
  50. LIPITOR [Concomitant]
     Dates: start: 20050914
  51. LIPITOR [Concomitant]
     Dates: start: 20050914
  52. PENICILLIN VK [Concomitant]
     Dates: start: 20000406
  53. HYDROCOD/APAP [Concomitant]
     Dosage: 7.5/750 MG
     Dates: start: 20000428
  54. HYDROCOD/APAP [Concomitant]
     Dosage: 5/500
     Dates: start: 20030923
  55. HYDROCOD/APAP [Concomitant]
     Dosage: 7.5/750 MG
     Dates: start: 20040511
  56. VALTREX [Concomitant]
     Dates: start: 20000518
  57. VALTREX [Concomitant]
     Dates: start: 20000908
  58. VALTREX [Concomitant]
     Dates: start: 20001206
  59. CHLORHEXIDINE GLUCONATE [Concomitant]
     Route: 048
     Dates: start: 20000714
  60. DOXYCYCLINE [Concomitant]
     Dates: start: 20000714
  61. TEMAZEPAM [Concomitant]
     Dates: start: 20001208
  62. DICYCLOMINE [Concomitant]
     Dates: start: 20010401
  63. ANTISPASMODIC ELX [Concomitant]
     Dates: start: 20010417
  64. CYCLOBENZAPRINE HCL [Concomitant]
     Dates: start: 20010604
  65. APAP W/ CODEINE [Concomitant]
     Dates: start: 19990126
  66. APAP W/ CODEINE [Concomitant]
     Dates: start: 20010606
  67. BENZONATATE [Concomitant]
     Dates: start: 20010923
  68. TEQUIN [Concomitant]
     Dates: start: 20010923
  69. ERYTHROMYCIN [Concomitant]
     Dates: start: 20011227
  70. TOPAMAX [Concomitant]
     Dates: start: 20020102
  71. TOPAMAX [Concomitant]
     Dates: start: 20020102
  72. GLUCOVANCE [Concomitant]
     Dosage: 2.5/500 MG
     Dates: start: 20020104
  73. OXYCODONE AND ACETAMINOPHEN [Concomitant]
     Dosage: 5/325
     Dates: start: 20020221
  74. LORAZEPAM [Concomitant]
     Dates: start: 20020924
  75. LORAZEPAM [Concomitant]
     Dates: start: 20021009
  76. LORAZEPAM [Concomitant]
     Dates: start: 20030708
  77. LORAZEPAM [Concomitant]
     Dates: start: 20040212
  78. LORAZEPAM [Concomitant]
     Dates: start: 20040726
  79. LORAZEPAM [Concomitant]
     Dates: start: 20041018
  80. LORAZEPAM [Concomitant]
     Dates: start: 20050108
  81. LORAZEPAM [Concomitant]
     Dates: start: 20050503
  82. LORAZEPAM [Concomitant]
     Dates: start: 20060211
  83. DIPHENOXYLATE/ATR [Concomitant]
     Dates: start: 20021118
  84. DIPHENOXYLATE/ATR [Concomitant]
     Dates: start: 20021009
  85. CLONAZEPAM [Concomitant]
     Dates: start: 20021217
  86. CLONAZEPAM [Concomitant]
     Dates: start: 20021009
  87. CLONAZEPAM [Concomitant]
     Dates: start: 20060318
  88. PROPOXYPHENE NAPSYLATE AND ACETAMINOPHEN [Concomitant]
     Dates: start: 20030124
  89. PROPOXYPHENE NAPSYLATE AND ACETAMINOPHEN [Concomitant]
     Dates: start: 20021009
  90. CLINDAMYCIN HCL [Concomitant]
     Dates: start: 20030206
  91. CLINDAMYCIN HCL [Concomitant]
     Dates: start: 20021009
  92. ZITHROMAX [Concomitant]
     Dates: start: 20010918
  93. ZITHROMAX [Concomitant]
     Dates: start: 20021009
  94. ECK CENTRAL-VITE [Concomitant]
     Dates: start: 20030422
  95. ECK CENTRAL-VITE [Concomitant]
     Dates: start: 20021009
  96. TRAZODONE HCL [Concomitant]
     Dates: start: 20030729
  97. LIDOCAINE [Concomitant]
     Dosage: 5%
     Dates: start: 20030826
  98. GLYBURIDE/METF [Concomitant]
     Dosage: 5/500 MG
     Dates: start: 20040717
  99. LUNESTA [Concomitant]
     Dates: start: 20060822
  100. METFORMIN [Concomitant]
     Dates: start: 20060622
  101. ABILIFY [Concomitant]
     Dates: start: 20060622
  102. IBUPROFEN [Concomitant]
     Dates: start: 20060624
  103. METHYLPRED [Concomitant]
     Dates: start: 20060624
  104. CHANTIX [Concomitant]
     Dates: start: 20060905
  105. CHANTIX [Concomitant]
     Dates: start: 20070117
  106. AVANDAMET [Concomitant]
     Dosage: 4-500 MG
     Dates: start: 20060906
  107. GLIPIZIDE [Concomitant]
     Dates: start: 20061012
  108. TRIMOX [Concomitant]
     Dates: start: 19990303
  109. NAPROXEN SODIUM [Concomitant]
     Dates: start: 19990303
  110. SIMVASTATIN [Concomitant]

REACTIONS (6)
  - DEATH [None]
  - DELUSION OF GRANDEUR [None]
  - DIABETES MELLITUS [None]
  - HEADACHE [None]
  - PARANOIA [None]
  - PSYCHOTIC DISORDER [None]
